FAERS Safety Report 17450586 (Version 6)
Quarter: 2021Q3

REPORT INFORMATION
  Report Type: Report from Study
  Country: None (occurrence: US)
  Receive Date: 20200224
  Receipt Date: 20210708
  Transmission Date: 20211014
  Serious: Yes (Other)
  Sender: FDA-Public Use
  Company Number: US-GLOBAL BLOOD THERAPEUTICS INC-US-GBT-20-00172

PATIENT
  Age: 14 Year
  Sex: Female
  Weight: 47 kg

DRUGS (11)
  1. FLUTICASONE. [Concomitant]
     Active Substance: FLUTICASONE
     Indication: HYPERSENSITIVITY
     Route: 045
     Dates: start: 201901
  2. HYDROXYUREA. [Concomitant]
     Active Substance: HYDROXYUREA
     Indication: SICKLE CELL DISEASE
     Route: 048
     Dates: start: 20170914
  3. KETOTIFEN [Concomitant]
     Active Substance: KETOTIFEN
     Indication: EYE PRURITUS
     Route: 031
     Dates: start: 201902
  4. IBUPROFEN. [Concomitant]
     Active Substance: IBUPROFEN
     Indication: ABDOMINAL PAIN
     Route: 048
     Dates: start: 201907
  5. VOXELOTOR. [Suspect]
     Active Substance: VOXELOTOR
     Route: 048
     Dates: start: 20200212, end: 20200318
  6. FOLIC ACID. [Concomitant]
     Active Substance: FOLIC ACID
     Indication: SICKLE CELL DISEASE
     Route: 048
  7. HYDROCODONE/ACETAMINOPHEN [Concomitant]
     Active Substance: ACETAMINOPHEN\HYDROCODONE
     Indication: SICKLE CELL DISEASE
     Dosage: 5?325 MILIGRAM
     Route: 048
     Dates: start: 20191111
  8. VOXELOTOR. [Suspect]
     Active Substance: VOXELOTOR
     Indication: SICKLE CELL DISEASE
     Route: 048
     Dates: start: 20190725, end: 20200211
  9. ADVIL [Concomitant]
     Active Substance: IBUPROFEN
     Indication: HEADACHE
     Route: 048
     Dates: start: 2015
  10. METRONIDAZOLE. [Concomitant]
     Active Substance: METRONIDAZOLE
     Indication: BACTERIAL VAGINOSIS
     Route: 067
     Dates: start: 20190725
  11. CETIRIZINE [Concomitant]
     Active Substance: CETIRIZINE HYDROCHLORIDE
     Indication: HYPERSENSITIVITY
     Route: 048
     Dates: start: 2016

REACTIONS (1)
  - Platelet disorder [Not Recovered/Not Resolved]

NARRATIVE: CASE EVENT DATE: 20200211
